FAERS Safety Report 8306274-9 (Version None)
Quarter: 2012Q2

REPORT INFORMATION
  Report Type: 
  Country: None (occurrence: None)
  Receive Date: 20120423
  Receipt Date: 20120413
  Transmission Date: 20120825
  Serious: Yes (Other)
  Sender: FDA-Public Use
  Company Number: GB-PFIZER INC-2012092031

PATIENT
  Age: 61 Year
  Sex: Male
  Weight: 84 kg

DRUGS (8)
  1. VENTOLIN [Concomitant]
     Dosage: UNK
     Dates: start: 20111230
  2. PIROXICAM [Concomitant]
     Dosage: UNK
     Dates: start: 20120220, end: 20120319
  3. FELODIPINE [Concomitant]
     Dosage: UNK
     Dates: start: 20111230
  4. CO-DYDRAMOL [Concomitant]
     Dosage: UNK
     Dates: start: 20120220, end: 20120321
  5. NAPROXEN [Concomitant]
     Dosage: UNK
     Dates: start: 20111213
  6. SALMETEROL [Concomitant]
     Dosage: UNK
     Dates: start: 20111213
  7. SIMVASTATIN [Concomitant]
     Dosage: UNK
     Dates: start: 20111230
  8. RAMIPRIL [Suspect]
     Dosage: UNK
     Dates: start: 20120319

REACTIONS (2)
  - DEPRESSION [None]
  - SUICIDAL IDEATION [None]
